FAERS Safety Report 5727553-5 (Version None)
Quarter: 2008Q2

REPORT INFORMATION
  Report Type: 
  Country: None (occurrence: None)
  Receive Date: 20080501
  Receipt Date: 20080501
  Transmission Date: 20081010
  Serious: Yes (Other)
  Sender: FDA-Public Use
  Company Number: None

PATIENT
  Sex: Female
  Weight: 69.4003 kg

DRUGS (6)
  1. DIGOXIN [Suspect]
     Indication: ATRIAL FIBRILLATION
     Dosage: 0.125 MG DAILY PO
     Route: 048
     Dates: start: 20080219, end: 20080424
  2. AMLODIPINE [Concomitant]
  3. CLONIDINE [Concomitant]
  4. ISOSORBIDE DINITRATE [Concomitant]
  5. CARDIZEM [Concomitant]
  6. FUROSEMIDE [Concomitant]

REACTIONS (6)
  - ARRHYTHMIA [None]
  - BLOOD GLUCOSE INCREASED [None]
  - BLOOD PRESSURE DIASTOLIC DECREASED [None]
  - FATIGUE [None]
  - HEART RATE DECREASED [None]
  - ISCHAEMIA [None]
